FAERS Safety Report 11289381 (Version 3)
Quarter: 2016Q1

REPORT INFORMATION
  Report Type: Report from Study
  Country: JP (occurrence: JP)
  Receive Date: 20150721
  Receipt Date: 20160311
  Transmission Date: 20160525
  Serious: Yes (Other)
  Sender: FDA-Public Use
  Company Number: JP-UCBSA-2015023054

PATIENT
  Age: 24 Year
  Sex: Female
  Weight: 36 kg

DRUGS (12)
  1. LEVETIRACETAM. [Suspect]
     Active Substance: LEVETIRACETAM
     Dosage: 1500 MG, DAILY
     Route: 048
     Dates: start: 20110202, end: 20140729
  2. ALEVIATIN [Suspect]
     Active Substance: PHENYTOIN SODIUM
     Indication: COMPLEX PARTIAL SEIZURES
     Dosage: 200 MG DAILY
     Route: 048
     Dates: start: 20090624
  3. SODIUM VALPROATE [Suspect]
     Active Substance: VALPROATE SODIUM
     Indication: COMPLEX PARTIAL SEIZURES
     Dosage: 800 MG DAILY
     Route: 048
     Dates: start: 20090624
  4. MAGMITT [Suspect]
     Active Substance: MAGNESIUM OXIDE
     Indication: CONSTIPATION
     Dosage: 500 MG DAILY
     Route: 048
     Dates: start: 20090415
  5. LEVETIRACETAM. [Suspect]
     Active Substance: LEVETIRACETAM
     Dosage: 2000 MG, DAILY
     Route: 048
     Dates: start: 20140730, end: 20150710
  6. LEVETIRACETAM. [Suspect]
     Active Substance: LEVETIRACETAM
     Indication: PARTIAL SEIZURES WITH SECONDARY GENERALISATION
     Dosage: 1000 MG, ONCE DAILY (QD)
     Route: 048
     Dates: start: 20110105, end: 20110201
  7. SODIUM VALPROATE [Suspect]
     Active Substance: VALPROATE SODIUM
     Indication: PARTIAL SEIZURES WITH SECONDARY GENERALISATION
  8. MYSTAN [Suspect]
     Active Substance: CLOBAZAM
     Indication: COMPLEX PARTIAL SEIZURES
     Dosage: 5 MG DAILY
     Route: 048
     Dates: start: 20090624
  9. MYSTAN [Suspect]
     Active Substance: CLOBAZAM
     Indication: PARTIAL SEIZURES WITH SECONDARY GENERALISATION
  10. DIAPP [Concomitant]
     Active Substance: DIAZEPAM
     Indication: PRODUCT USED FOR UNKNOWN INDICATION
     Dosage: UNK
     Route: 054
     Dates: start: 20070122
  11. LEVETIRACETAM. [Suspect]
     Active Substance: LEVETIRACETAM
     Indication: COMPLEX PARTIAL SEIZURES
     Dosage: 500 MG, ONCE DAILY (QD)
     Route: 048
     Dates: start: 20101222, end: 20110104
  12. ALEVIATIN [Suspect]
     Active Substance: PHENYTOIN SODIUM
     Indication: PARTIAL SEIZURES WITH SECONDARY GENERALISATION

REACTIONS (4)
  - White blood cell count decreased [Recovered/Resolved]
  - Pneumonia [Recovered/Resolved]
  - Pyrexia [Recovered/Resolved]
  - Platelet count decreased [Not Recovered/Not Resolved]

NARRATIVE: CASE EVENT DATE: 20140816
